FAERS Safety Report 16437510 (Version 1)
Quarter: 2019Q2

REPORT INFORMATION
  Report Type: Report from Study
  Country: FR (occurrence: FR)
  Receive Date: 20190615
  Receipt Date: 20190615
  Transmission Date: 20190711
  Serious: Yes (Death, Other)
  Sender: FDA-Public Use
  Company Number: FR-INGENUS PHARMACEUTICALS, LLC-2019INF000193

PATIENT

DRUGS (4)
  1. LEUCOVORIN CALCIUM. [Suspect]
     Active Substance: LEUCOVORIN CALCIUM
     Indication: GASTROOESOPHAGEAL CANCER
     Dosage: 400 MILLIGRAM/SQ. METER, 2 H INFUSION, EVERY 2 WEEKS
     Route: 042
  2. 5-FLUOROURACIL [Suspect]
     Active Substance: FLUOROURACIL
     Indication: GASTROOESOPHAGEAL CANCER
     Dosage: 400 MILLIGRAM/SQ. METER BOLUS THEN 2400 MILLIGRAM/SQ. METER INFUSED OVER 46 H, EVERY 2 WEEKS
     Route: 065
  3. OXALIPLATIN. [Suspect]
     Active Substance: OXALIPLATIN
     Indication: GASTROOESOPHAGEAL CANCER
     Dosage: 85 MILLIGRAM/SQ. METER, 2 H INFUSION, EVERY 2 WEEKS
     Route: 042
  4. PANITUMUMAB [Suspect]
     Active Substance: PANITUMUMAB
     Indication: GASTROOESOPHAGEAL CANCER
     Dosage: 6 MILLIGRAM/KILOGRAM, 1 HR INFUSION, EVERY 2 WEEKS
     Route: 042

REACTIONS (1)
  - Death [Fatal]
